FAERS Safety Report 13569471 (Version 1)
Quarter: 2017Q2

REPORT INFORMATION
  Report Type: Spontaneous
  Country: FR (occurrence: FR)
  Receive Date: 20170522
  Receipt Date: 20170522
  Transmission Date: 20170830
  Serious: Yes (Life-Threatening, Hospitalization)
  Sender: FDA-Public Use
  Company Number: FR-NOVOPROD-545446

PATIENT
  Age: 38 Year
  Sex: Male

DRUGS (6)
  1. NOVORAPID [Suspect]
     Active Substance: INSULIN ASPART
     Dosage: 10 U ON EVENING
     Route: 058
  2. LANTUS [Suspect]
     Active Substance: INSULIN GLARGINE
     Dosage: UNK
     Route: 058
  3. LANTUS [Suspect]
     Active Substance: INSULIN GLARGINE
     Dosage: 6 SYRINGUES ON THE FLOOR OF THE BOTH DRUGS
     Route: 058
     Dates: start: 20170411, end: 20170411
  4. NOVORAPID [Suspect]
     Active Substance: INSULIN ASPART
     Dosage: 6 SYRINGUES ON THE FLOOR OF THE BOTH DRUGS
     Route: 058
     Dates: start: 20170411, end: 20170411
  5. NOVORAPID [Suspect]
     Active Substance: INSULIN ASPART
     Indication: TYPE 1 DIABETES MELLITUS
     Dosage: 15 U, TID
     Route: 058
     Dates: start: 1990
  6. LANTUS [Suspect]
     Active Substance: INSULIN GLARGINE
     Indication: TYPE 1 DIABETES MELLITUS
     Dosage: 40 U, QD (MORNING)
     Route: 058
     Dates: start: 1990

REACTIONS (5)
  - Coma [Recovered/Resolved]
  - Nervous system disorder [Recovering/Resolving]
  - Suicide attempt [Unknown]
  - Tachycardia [Recovered/Resolved]
  - Hypoglycaemia [Recovered/Resolved]

NARRATIVE: CASE EVENT DATE: 20170411
